FAERS Safety Report 8956921 (Version 4)
Quarter: 2013Q1

REPORT INFORMATION
  Report Type: Report from Study
  Country: FR (occurrence: FR)
  Receive Date: 20121210
  Receipt Date: 20130129
  Transmission Date: 20140127
  Serious: Yes (Congenital Anomaly)
  Sender: FDA-Public Use
  Company Number: FR-GILEAD-2012-0065831

PATIENT
  Sex: Male

DRUGS (3)
  1. EMTRICITABINE/TENOFOVIR DISOPROXIL FUMARATE [Suspect]
     Indication: HIV INFECTION
     Dosage: 445 MG, QD
     Route: 064
  2. REYATAZ [Suspect]
     Indication: HIV INFECTION
     Dosage: 2 DF, QD
     Route: 064
  3. RITONAVIR [Suspect]
     Indication: HIV INFECTION
     Route: 064

REACTIONS (1)
  - Haemangioma of skin [Unknown]
